FAERS Safety Report 10452694 (Version 1)
Quarter: 2014Q3

REPORT INFORMATION
  Report Type: Spontaneous
  Country: CH (occurrence: CH)
  Receive Date: 20140915
  Receipt Date: 20140915
  Transmission Date: 20150326
  Serious: Yes (Life-Threatening)
  Sender: FDA-Public Use
  Company Number: CH-BAYER-2014-131185

PATIENT
  Age: 61 Year
  Sex: Male
  Weight: 85 kg

DRUGS (23)
  1. ASPIRIN CARDIO [Suspect]
     Active Substance: ASPIRIN
     Dosage: 100 MG, QD
     Route: 048
     Dates: start: 20140704
  2. NORADRENALIN [Concomitant]
     Active Substance: NOREPINEPHRINE\NOREPINEPHRINE BITARTRATE
     Dosage: UNK
     Route: 042
     Dates: start: 20140703
  3. ACTRAPID [Concomitant]
     Active Substance: INSULIN HUMAN
     Dosage: UNK
     Route: 042
     Dates: start: 20140704
  4. DORMICUM [Concomitant]
     Active Substance: MIDAZOLAM\MIDAZOLAM HYDROCHLORIDE
     Dosage: UNK
     Route: 042
     Dates: start: 20140703
  5. HEPARIN [Concomitant]
     Active Substance: HEPARIN SODIUM
     Dosage: UNK
     Route: 042
     Dates: start: 20140703
  6. PRASUGREL [Concomitant]
     Active Substance: PRASUGREL
     Dosage: UNK
     Route: 048
     Dates: start: 20140703
  7. ATORVASTATIN [Concomitant]
     Active Substance: ATORVASTATIN
     Dosage: 40 MG, QD
     Route: 048
     Dates: start: 20140704
  8. MAGNESIUM [Concomitant]
     Active Substance: MAGNESIUM
     Dosage: UNK
     Route: 042
     Dates: start: 20140704, end: 20140704
  9. ADRENALIN [Concomitant]
     Active Substance: EPINEPHRINE
     Dosage: UNK
     Dates: start: 20140705, end: 20140705
  10. ASPEGIC [Concomitant]
     Active Substance: ASPIRIN DL-LYSINE
     Dosage: 500 MG, QD
     Route: 042
     Dates: start: 20140703, end: 20140703
  11. ATRACURIUM BESILATE [Concomitant]
     Active Substance: ATRACURIUM BESYLATE
     Dosage: UNK
     Route: 042
     Dates: start: 20140704, end: 20140704
  12. LYSTHENON [Concomitant]
     Dosage: UNK
     Route: 042
     Dates: start: 20140704, end: 20140704
  13. SINTENYL [Concomitant]
     Active Substance: FENTANYL CITRATE
     Dosage: UNK
     Route: 042
     Dates: start: 20140704
  14. PROPOFOL LIPURO [Concomitant]
     Active Substance: PROPOFOL
     Dosage: UNK
     Route: 042
     Dates: start: 20140704
  15. PERFALGAN [Suspect]
     Active Substance: ACETAMINOPHEN
     Dosage: 1 G PER 6 HOURS
     Route: 041
     Dates: start: 20140703
  16. NEXIUM [Suspect]
     Active Substance: ESOMEPRAZOLE MAGNESIUM
     Dosage: 40 MG, TID
     Route: 041
     Dates: start: 20140704, end: 20140706
  17. REOPRO [Concomitant]
     Active Substance: ABCIXIMAB
     Dosage: UNK
     Route: 042
     Dates: start: 20140703, end: 20140704
  18. CORDARONE [Suspect]
     Active Substance: AMIODARONE HYDROCHLORIDE
     Dosage: UNK
     Route: 041
     Dates: start: 20140705
  19. AUGMENTIN [Concomitant]
     Active Substance: AMOXICILLIN\CLAVULANATE POTASSIUM
     Dosage: 1.2 G, TID
     Route: 042
     Dates: start: 20140706
  20. VITAMIN K [Concomitant]
     Active Substance: PHYTONADIONE
     Dosage: 10 MG, QD
     Route: 042
     Dates: start: 20140706, end: 20140706
  21. DOBUTAMIN FRESENIUS [Concomitant]
     Dosage: UNK
     Route: 042
     Dates: start: 20140703
  22. MORPHIN [Concomitant]
     Active Substance: MORPHINE
     Dosage: UNK
     Route: 042
     Dates: start: 20140703, end: 20140704
  23. NOVALGIN [Concomitant]
     Active Substance: METAMIZOLE SODIUM
     Dosage: UNK
     Route: 042
     Dates: start: 20140705, end: 20140706

REACTIONS (1)
  - Coombs negative haemolytic anaemia [None]

NARRATIVE: CASE EVENT DATE: 20140705
